FAERS Safety Report 17207466 (Version 2)
Quarter: 2020Q1

REPORT INFORMATION
  Report Type: Spontaneous
  Country: US (occurrence: US)
  Receive Date: 20191227
  Receipt Date: 20200109
  Transmission Date: 20200409
  Serious: Yes (Other)
  Sender: FDA-Public Use
  Company Number: US-PFIZER INC-2019530533

PATIENT
  Age: 71 Year
  Sex: Female
  Weight: 58.97 kg

DRUGS (4)
  1. METAXALONE. [Concomitant]
     Active Substance: METAXALONE
     Indication: MUSCLE SPASMS
     Dosage: UNK, AS NEEDED
  2. METAXALONE. [Concomitant]
     Active Substance: METAXALONE
     Indication: SCIATICA
  3. PREMARIN [Suspect]
     Active Substance: ESTROGENS, CONJUGATED
     Indication: VULVOVAGINAL DRYNESS
     Dosage: 0.5 G, UNK, (3 TIMES A WEEK X 1 MONTH (30 D))
     Route: 067
  4. ARMOUR THYROID [Concomitant]
     Active Substance: THYROID, PORCINE
     Dosage: UNK

REACTIONS (3)
  - Product use issue [Unknown]
  - Off label use [Unknown]
  - Uterine prolapse [Unknown]
